APPROVED DRUG PRODUCT: CYPROHEPTADINE HYDROCHLORIDE
Active Ingredient: CYPROHEPTADINE HYDROCHLORIDE
Strength: 4MG
Dosage Form/Route: TABLET;ORAL
Application: A087839 | Product #001
Applicant: PIONEER PHARMACEUTICALS INC
Approved: Feb 8, 1984 | RLD: No | RS: No | Type: DISCN